FAERS Safety Report 9893893 (Version 1)
Quarter: 2014Q1

REPORT INFORMATION
  Report Type: Spontaneous
  Country: US (occurrence: US)
  Receive Date: 20140213
  Receipt Date: 20140213
  Transmission Date: 20141002
  Serious: Yes (Other)
  Sender: FDA-Public Use
  Company Number: US-JNJFOC-20140205168

PATIENT
  Sex: Male
  Weight: 90.72 kg

DRUGS (1)
  1. NUCYNTA ER [Suspect]
     Indication: NEUROPATHY PERIPHERAL
     Route: 048
     Dates: start: 20140130

REACTIONS (1)
  - Rhabdomyolysis [Not Recovered/Not Resolved]
